FAERS Safety Report 7270049-2 (Version None)
Quarter: 2010Q4

REPORT INFORMATION
  Report Type: 
  Country: None (occurrence: None)
  Receive Date: 20101130
  Receipt Date: 20091117
  Transmission Date: 20110411
  Serious: Yes (Hospitalization, Other)
  Sender: FDA-Public Use
  Company Number: 2009-19449-NL

PATIENT
  Age: 45 Year
  Sex: Female
  Weight: 79.3795 kg

DRUGS (3)
  1. NUVARING [Suspect]
     Indication: MENORRHAGIA
     Dosage: 1 DF
     Dates: start: 20070101, end: 20070401
  2. NUVARING [Suspect]
     Indication: OESTROGEN REPLACEMENT THERAPY
     Dosage: 1 DF
     Dates: start: 20070101, end: 20070401
  3. NUVARING [Suspect]
     Indication: PREMENSTRUAL SYNDROME
     Dosage: 1 DF
     Dates: start: 20070101, end: 20070401

REACTIONS (1)
  - DEEP VEIN THROMBOSIS [None]
